FAERS Safety Report 15657173 (Version 3)
Quarter: 2019Q1

REPORT INFORMATION
  Report Type: Report from Study
  Country: FR (occurrence: FR)
  Receive Date: 20181126
  Receipt Date: 20190207
  Transmission Date: 20190417
  Serious: Yes (Other)
  Sender: FDA-Public Use
  Company Number: PHHY2018FR165457

PATIENT
  Age: 24 Year
  Sex: Female

DRUGS (1)
  1. COSENTYX [Suspect]
     Active Substance: SECUKINUMAB
     Indication: PSORIASIS
     Dosage: UNK
     Route: 065
     Dates: start: 20181108, end: 20181109

REACTIONS (2)
  - Haematochezia [Recovered/Resolved]
  - Mucous stools [Recovered/Resolved]

NARRATIVE: CASE EVENT DATE: 201811
